FAERS Safety Report 17956824 (Version 2)
Quarter: 2020Q2

REPORT INFORMATION
  Report Type: Report from Study
  Country: FR (occurrence: FR)
  Receive Date: 20200629
  Receipt Date: 20200630
  Transmission Date: 20200714
  Serious: Yes (Death)
  Sender: FDA-Public Use
  Company Number: FR-PFIZER INC-2020245446

PATIENT

DRUGS (6)
  1. SODIUM CHLORIDE. [Concomitant]
     Active Substance: SODIUM CHLORIDE
     Dosage: 150 ML, (BODY SURFACE IN 150 ML NACL 0.9%)
  2. CISPLATIN. [Suspect]
     Active Substance: CISPLATIN
     Indication: GASTRIC CANCER
  3. DOXORUBICIN HCL [Suspect]
     Active Substance: DOXORUBICIN HYDROCHLORIDE
     Indication: GASTRIC CANCER
  4. CISPLATIN. [Suspect]
     Active Substance: CISPLATIN
     Indication: METASTASES TO PERITONEUM
     Dosage: 7.5 MG/M2, CYCLIC (BODY SURFACE IN 150 ML NACL 0.9%, WERE GIVEN FOR 30 MIN AT 6-WEEK INTERVALS)
     Route: 033
  5. DOXORUBICIN HCL [Suspect]
     Active Substance: DOXORUBICIN HYDROCHLORIDE
     Indication: METASTASES TO PERITONEUM
     Dosage: 1.5 MG/M2, CYCLIC (IN 50 ML NACL 0.9%, GIVEN FOR 30 MIN AT 6-WEEK INTERVALS)
     Route: 033
  6. SODIUM CHLORIDE. [Concomitant]
     Active Substance: SODIUM CHLORIDE
     Dosage: 50 ML, (50 ML NACL 0.9%)

REACTIONS (1)
  - Small intestinal obstruction [Fatal]
